FAERS Safety Report 7287670-8 (Version None)
Quarter: 2011Q1

REPORT INFORMATION
  Report Type: 
  Country: None (occurrence: None)
  Receive Date: 20110211
  Receipt Date: 20110131
  Transmission Date: 20110831
  Serious: Yes (Other)
  Sender: FDA-Public Use
  Company Number: US-ELI_LILLY_AND_COMPANY-US201008006258

PATIENT
  Sex: Female
  Weight: 52.154 kg

DRUGS (18)
  1. COQ-10 [Concomitant]
     Dosage: 100 MG, UNK
  2. STOOL SOFTENER [Concomitant]
     Indication: INTESTINAL FUNCTIONAL DISORDER
     Dosage: UNK, EACH EVENING
  3. DYAZIDE [Concomitant]
     Indication: FLUID RETENTION
  4. ESTER-C [Concomitant]
  5. FORTEO [Suspect]
     Indication: OSTEOPOROSIS
     Dosage: 20 UG, DAILY (1/D)
     Route: 058
     Dates: start: 20100801
  6. ASCORBIC ACID [Concomitant]
     Dosage: UNK, DAILY (1/D)
  7. SERAX [Concomitant]
  8. CALTRATE [Concomitant]
  9. GLUCOSAMINE CHONDROITIN [Concomitant]
     Dosage: UNK, DAILY (1/D)
  10. FORTEO [Suspect]
     Dosage: 20 UG, DAILY (1/D)
     Route: 058
  11. LOVAZA [Concomitant]
  12. ULTRACET [Concomitant]
     Indication: PAIN
     Dosage: UNK, EACH EVENING
  13. AZITHROMYCIN [Concomitant]
  14. PRILOSEC [Concomitant]
  15. FORTEO [Suspect]
     Dosage: 20 UG, DAILY (1/D)
     Route: 058
  16. CLARITIN [Concomitant]
     Indication: HYPERSENSITIVITY
  17. MILK OF MAGNESIA TAB [Concomitant]
     Indication: INTESTINAL FUNCTIONAL DISORDER
     Dosage: UNK, EACH EVENING
  18. OSTEOCAPS [Concomitant]

REACTIONS (13)
  - BLOOD PRESSURE INCREASED [None]
  - EYE HAEMORRHAGE [None]
  - ASTHENIA [None]
  - INJECTION SITE PAIN [None]
  - NAUSEA [None]
  - MACULAR DEGENERATION [None]
  - VISUAL IMPAIRMENT [None]
  - DIZZINESS [None]
  - CARDIOVASCULAR DISORDER [None]
  - CATARACT [None]
  - MALAISE [None]
  - EYE PAIN [None]
  - HEADACHE [None]
